FAERS Safety Report 21542099 (Version 1)
Quarter: 2022Q4

REPORT INFORMATION
  Report Type: Spontaneous
  Country: US (occurrence: US)
  Receive Date: 20221102
  Receipt Date: 20221102
  Transmission Date: 20230113
  Serious: Yes (Hospitalization)
  Sender: FDA-Public Use
  Company Number: US-002147023-NVSC2022US242824

PATIENT
  Age: 60 Year
  Sex: Male

DRUGS (1)
  1. METHOTREXATE [Suspect]
     Active Substance: METHOTREXATE
     Indication: Product used for unknown indication
     Dosage: 15 MG, QD (INSTEAD OF WEEKLY)
     Route: 065

REACTIONS (5)
  - Stomatitis [Recovering/Resolving]
  - Skin ulcer [Recovering/Resolving]
  - Swollen tongue [Recovering/Resolving]
  - Drug level above therapeutic [Unknown]
  - Inappropriate schedule of product administration [Unknown]
